FAERS Safety Report 6521949-X (Version None)
Quarter: 2009Q4

REPORT INFORMATION
  Report Type: 
  Country: None (occurrence: None)
  Receive Date: 20091214
  Receipt Date: 20090727
  Transmission Date: 20100525
  Serious: Yes (Hospitalization)
  Sender: FDA-Public Use
  Company Number: 647047

PATIENT
  Age: 67 Year
  Sex: Male
  Weight: 108.9 kg

DRUGS (3)
  1. PEGASYS [Suspect]
     Indication: HEPATITIS C
     Dosage: 180 UG 1 PER WEEK
     Dates: start: 20090714
  2. RIBAVIRIN [Suspect]
     Indication: HEPATITIS C
     Dosage: 1200 MG DAILY
     Dates: start: 20090714
  3. NEOPEGEN (FILGRASTIM) [Concomitant]

REACTIONS (5)
  - ABDOMINAL PAIN [None]
  - HEADACHE [None]
  - LEUKOPENIA [None]
  - PYREXIA [None]
  - WEIGHT DECREASED [None]
